FAERS Safety Report 7610825-7 (Version None)
Quarter: 2011Q3

REPORT INFORMATION
  Report Type: 
  Country: None (occurrence: None)
  Receive Date: 20110715
  Receipt Date: 20110706
  Transmission Date: 20111222
  Serious: Yes (Hospitalization, Other)
  Sender: FDA-Public Use
  Company Number: CH-US-EMD SERONO, INC.-7069332

PATIENT
  Sex: Female
  Weight: 84 kg

DRUGS (4)
  1. REBIF [Suspect]
     Indication: MULTIPLE SCLEROSIS
     Route: 058
     Dates: start: 20060601
  2. ACETAMINOPHEN [Concomitant]
     Indication: PROPHYLAXIS
     Route: 048
     Dates: start: 20060601
  3. LIORESAL [Concomitant]
     Indication: MUSCLE SPASMS
     Route: 048
     Dates: start: 19870101
  4. PADMA [Concomitant]
     Route: 048

REACTIONS (6)
  - VAGINAL OPERATION [None]
  - HYSTERECTOMY [None]
  - MENINGITIS [None]
  - CYSTOPEXY [None]
  - CYSTITIS [None]
  - MULTIPLE SCLEROSIS RELAPSE [None]
